FAERS Safety Report 5895238-0 (Version None)
Quarter: 2008Q3

REPORT INFORMATION
  Report Type: 
  Country: None (occurrence: None)
  Receive Date: 20080924
  Receipt Date: 20080919
  Transmission Date: 20090109
  Serious: Yes (Hospitalization)
  Sender: FDA-Public Use
  Company Number: B0528863A

PATIENT
  Age: 21 Year
  Sex: Male

DRUGS (2)
  1. DEROXAT [Suspect]
     Dosage: 10MG PER DAY
     Route: 048
     Dates: start: 20080227, end: 20080701
  2. FORLAX [Concomitant]
     Dosage: 2SAC PER DAY

REACTIONS (9)
  - AGGRESSION [None]
  - AGITATION [None]
  - ANOREXIA [None]
  - BIPOLAR I DISORDER [None]
  - EUPHORIC MOOD [None]
  - HYPOMANIA [None]
  - INSOMNIA [None]
  - LOGORRHOEA [None]
  - SLEEP DISORDER [None]
